FAERS Safety Report 11741238 (Version 2)
Quarter: 2016Q1

REPORT INFORMATION
  Report Type: Spontaneous
  Country: US (occurrence: US)
  Receive Date: 20151116
  Receipt Date: 20160208
  Transmission Date: 20160525
  Serious: No
  Sender: FDA-Public Use
  Company Number: US-TEVA-587764USA

PATIENT
  Sex: Male

DRUGS (5)
  1. ARIPIPRAZOLE. [Suspect]
     Active Substance: ARIPIPRAZOLE
     Indication: BIPOLAR DISORDER
     Route: 048
  2. NUVIGIL [Concomitant]
     Active Substance: ARMODAFINIL
  3. ALPRIZOLAM [Concomitant]
     Dosage: 1 GRAM DAILY;
  4. CLONAZEPAM. [Concomitant]
     Active Substance: CLONAZEPAM
     Dosage: HS
  5. LACMITAL [Concomitant]

REACTIONS (7)
  - Irritability [Recovered/Resolved]
  - Mood swings [Recovered/Resolved]
  - Nervousness [Unknown]
  - Crying [Recovered/Resolved]
  - Feeling abnormal [Unknown]
  - Agitation [Unknown]
  - Product substitution issue [Unknown]

NARRATIVE: CASE EVENT DATE: 20131001
